FAERS Safety Report 16144580 (Version 1)
Quarter: 2019Q2

REPORT INFORMATION
  Report Type: Spontaneous
  Country: US (occurrence: US)
  Receive Date: 20190402
  Receipt Date: 20190402
  Transmission Date: 20190711
  Serious: Yes (Hospitalization, Other)
  Sender: FDA-Public Use
  Company Number: PHEH2019US013980

PATIENT
  Age: 8 Year
  Sex: Male
  Weight: 19.1 kg

DRUGS (1)
  1. KYMRIAH [Suspect]
     Active Substance: TISAGENLECLEUCEL
     Indication: B-CELL TYPE ACUTE LEUKAEMIA
     Dosage: UNK
     Route: 042
     Dates: start: 20190225

REACTIONS (11)
  - Sepsis [Unknown]
  - Cytokine release syndrome [Recovered/Resolved]
  - C-reactive protein increased [Recovered/Resolved]
  - Fibrin D dimer increased [Recovered/Resolved]
  - Bone marrow myelogram abnormal [Unknown]
  - Thrombin time prolonged [Recovered/Resolved]
  - Pyrexia [Unknown]
  - Hypotension [Unknown]
  - Activated partial thromboplastin time prolonged [Recovered/Resolved]
  - International normalised ratio increased [Recovered/Resolved]
  - Prothrombin time prolonged [Recovered/Resolved]

NARRATIVE: CASE EVENT DATE: 20190305
